FAERS Safety Report 12263477 (Version 2)
Quarter: 2016Q2

REPORT INFORMATION
  Report Type: Spontaneous
  Country: CA (occurrence: CA)
  Receive Date: 20160413
  Receipt Date: 20160518
  Transmission Date: 20160815
  Serious: Yes (Other)
  Sender: FDA-Public Use
  Company Number: CA-GILEAD-2016-0206741

PATIENT
  Age: 58 Year
  Sex: Female

DRUGS (8)
  1. DAKLINZA [Suspect]
     Active Substance: DACLATASVIR
     Indication: HEPATITIS C
     Dosage: 60 MG, UNK
     Route: 048
     Dates: start: 201603
  2. SOVALDI [Suspect]
     Active Substance: SOFOSBUVIR
     Indication: HEPATITIS C
     Dosage: 400 MG, UNK
     Route: 048
     Dates: start: 201603
  3. DRISTAN                            /00070002/ [Suspect]
     Active Substance: OXYMETAZOLINE HYDROCHLORIDE
     Indication: SINUS DISORDER
     Route: 065
  4. CRESTOR [Concomitant]
     Active Substance: ROSUVASTATIN CALCIUM
  5. DALACIN T [Concomitant]
     Active Substance: CLINDAMYCIN PHOSPHATE
  6. NAPROXEN. [Concomitant]
     Active Substance: NAPROXEN
  7. CIPROLAX [Concomitant]
  8. FLEXERIL [Concomitant]
     Active Substance: CYCLOBENZAPRINE HYDROCHLORIDE

REACTIONS (3)
  - Therapy cessation [Unknown]
  - Sinus congestion [Unknown]
  - Hepatic cirrhosis [Not Recovered/Not Resolved]
